FAERS Safety Report 15613976 (Version 1)
Quarter: 2018Q4

REPORT INFORMATION
  Report Type: Spontaneous
  Country: US (occurrence: US)
  Receive Date: 20181113
  Receipt Date: 20181113
  Transmission Date: 20190205
  Serious: Yes (Hospitalization)
  Sender: FDA-Public Use
  Company Number: US-VERTEX PHARMACEUTICALS-2018-008267

PATIENT
  Sex: Female

DRUGS (20)
  1. DESVENLAFAXINE. [Concomitant]
     Active Substance: DESVENLAFAXINE
  2. OXYCONTIN [Concomitant]
     Active Substance: OXYCODONE HYDROCHLORIDE
  3. TEMAZEPAM. [Concomitant]
     Active Substance: TEMAZEPAM
  4. SYMDEKO [Suspect]
     Active Substance: IVACAFTOR\TEZACAFTOR
     Indication: CYSTIC FIBROSIS
     Dosage: UNK, BID
     Route: 048
     Dates: start: 20180817
  5. CREON [Concomitant]
     Active Substance: PANCRELIPASE AMYLASE\PANCRELIPASE LIPASE\PANCRELIPASE PROTEASE
  6. AZITHROMYCIN ANHYDROUS. [Concomitant]
     Active Substance: AZITHROMYCIN ANHYDROUS
  7. LORAZEPAM. [Concomitant]
     Active Substance: LORAZEPAM
  8. FLUTICASONE. [Concomitant]
     Active Substance: FLUTICASONE
  9. HYPERSAL [Concomitant]
  10. FLOVENT [Concomitant]
     Active Substance: FLUTICASONE PROPIONATE
  11. EMBEDA [Concomitant]
     Active Substance: MORPHINE SULFATE\NALTREXONE HYDROCHLORIDE
  12. OMEPRAZOLE. [Concomitant]
     Active Substance: OMEPRAZOLE
  13. TOBRAMYCIN. [Concomitant]
     Active Substance: TOBRAMYCIN
  14. ALBUTEROL                          /00139501/ [Concomitant]
     Active Substance: ALBUTEROL
  15. DIAZEPAM. [Concomitant]
     Active Substance: DIAZEPAM
  16. GABAPENTIN. [Concomitant]
     Active Substance: GABAPENTIN
  17. MIRALAX [Concomitant]
     Active Substance: POLYETHYLENE GLYCOL 3350
  18. PROMETHAZINE [Concomitant]
     Active Substance: PROMETHAZINE\PROMETHAZINE HYDROCHLORIDE
  19. PROPRANOLOL [Concomitant]
     Active Substance: PROPRANOLOL HYDROCHLORIDE
  20. PULMOZYME [Concomitant]
     Active Substance: DORNASE ALFA

REACTIONS (6)
  - Gastric ulcer [Unknown]
  - Cough [Unknown]
  - Nasal congestion [Unknown]
  - Lacrimation increased [Unknown]
  - Sneezing [Unknown]
  - Rhinorrhoea [Unknown]

NARRATIVE: CASE EVENT DATE: 2018
